FAERS Safety Report 7586103-1 (Version None)
Quarter: 2011Q2

REPORT INFORMATION
  Report Type: 
  Country: None (occurrence: None)
  Receive Date: 20110624
  Receipt Date: 20110620
  Transmission Date: 20111010
  Serious: Yes (Hospitalization)
  Sender: FDA-Public Use
  Company Number: 2011SP028559

PATIENT
  Age: 76 Year
  Sex: Female

DRUGS (10)
  1. OXAZEPAM [Concomitant]
  2. ACETAMINOPHEN [Concomitant]
  3. VENLAFAXINE HCL [Suspect]
     Indication: PRODUCT USED FOR UNKNOWN INDICATION
     Dosage: 32.5 MG; BID; PO
     Route: 048
     Dates: start: 20110125, end: 20110223
  4. PANTOPRAZOLE [Concomitant]
  5. DEBRIDAT [Concomitant]
  6. CLONAZEPAM [Suspect]
     Indication: PRODUCT USED FOR UNKNOWN INDICATION
     Dosage: ; PO
     Route: 048
     Dates: end: 20110223
  7. TRAMADOL HCL [Concomitant]
  8. MIRTAZAPINE [Suspect]
     Indication: PRODUCT USED FOR UNKNOWN INDICATION
     Dosage: ; PO
     Route: 048
     Dates: start: 20110218, end: 20110223
  9. LOVENOX [Concomitant]
  10. KAYEXALATE [Concomitant]

REACTIONS (3)
  - LEUKOPENIA [None]
  - HAEMOLYTIC ANAEMIA [None]
  - IATROGENIC INJURY [None]
